FAERS Safety Report 10686852 (Version 2)
Quarter: 2015Q1

REPORT INFORMATION
  Report Type: Spontaneous
  Country: IT (occurrence: IT)
  Receive Date: 20150102
  Receipt Date: 20150207
  Transmission Date: 20150720
  Serious: Yes (Hospitalization, Other)
  Sender: FDA-Public Use
  Company Number: IT-AUROBINDO-AUR-APL-2014-13793

PATIENT
  Age: 86 Year
  Sex: Female

DRUGS (4)
  1. RAMIPRIL A [Suspect]
     Active Substance: RAMIPRIL
     Indication: PRODUCT USED FOR UNKNOWN INDICATION
     Dosage: UNK
     Route: 065
  2. METFORMIN [Suspect]
     Active Substance: METFORMIN HYDROCHLORIDE
     Indication: PRODUCT USED FOR UNKNOWN INDICATION
     Dosage: 1750 MG, DAILY
     Route: 065
  3. ACETYLSALICYLIC ACID ALUMINIUM [Suspect]
     Active Substance: ASPIRIN ALUMINUM
     Indication: PRODUCT USED FOR UNKNOWN INDICATION
     Dosage: UNK
     Route: 065
  4. GLIMEPIRIDE. [Suspect]
     Active Substance: GLIMEPIRIDE
     Indication: PRODUCT USED FOR UNKNOWN INDICATION
     Dosage: UNK
     Route: 065

REACTIONS (14)
  - Lactic acidosis [Unknown]
  - Decreased appetite [Unknown]
  - Hyperkalaemia [Unknown]
  - Diarrhoea [Unknown]
  - Anuria [Unknown]
  - Cerebral ischaemia [Unknown]
  - Acute kidney injury [Unknown]
  - Cardiac arrest [Recovering/Resolving]
  - Hypothermia [Unknown]
  - Abdominal pain [Unknown]
  - Sopor [Unknown]
  - Blood lactic acid increased [Unknown]
  - Acidosis [Unknown]
  - Hypovolaemia [Unknown]
